FAERS Safety Report 11198366 (Version 1)
Quarter: 2015Q2

REPORT INFORMATION
  Report Type: Spontaneous
  Country: TW (occurrence: TW)
  Receive Date: 20150618
  Receipt Date: 20150618
  Transmission Date: 20150821
  Serious: Yes (Life-Threatening, Hospitalization, Other)
  Sender: FDA-Public Use
  Company Number: TW-PAR PHARMACEUTICAL, INC-2015SCPR014050

PATIENT

DRUGS (2)
  1. TRETINOIN. [Suspect]
     Active Substance: TRETINOIN
     Indication: ACUTE PROMYELOCYTIC LEUKAEMIA
     Dosage: 45 MG/M2, / DAY
     Route: 048
  2. TRETINOIN. [Suspect]
     Active Substance: TRETINOIN
     Dosage: UNK UNK, UNKNOWN
     Route: 048

REACTIONS (14)
  - Atrioventricular block first degree [Recovered/Resolved]
  - Paresis [Unknown]
  - Headache [Unknown]
  - Unresponsive to stimuli [Unknown]
  - Seizure [Unknown]
  - Mucosal inflammation [Unknown]
  - Atrioventricular block second degree [Recovered/Resolved]
  - Delirium [Unknown]
  - Loss of consciousness [Unknown]
  - Aphasia [Unknown]
  - Consciousness fluctuating [Unknown]
  - Bone pain [Unknown]
  - Atrioventricular block complete [Recovered/Resolved]
  - Respiratory arrest [Unknown]
